FAERS Safety Report 6058006-5 (Version None)
Quarter: 2009Q1

REPORT INFORMATION
  Report Type: 
  Country: None (occurrence: None)
  Receive Date: 20090127
  Receipt Date: 20090115
  Transmission Date: 20090719
  Serious: Yes (Life-Threatening, Hospitalization)
  Sender: FDA-Public Use
  Company Number: MPS1-1000152

PATIENT
  Age: 31 Year
  Sex: Male

DRUGS (4)
  1. ALDURAZYME [Suspect]
     Indication: MUCOPOLYSACCHARIDOSIS I
     Dosage: 31 MG, UNK, INTRAVENOUS
     Route: 042
     Dates: start: 20010101
  2. ANTI-DIARRHEAL (ANTI-DIARRHEAL) [Concomitant]
  3. PRED FORTE [Concomitant]
  4. PRED FORTE [Concomitant]

REACTIONS (6)
  - ABDOMINAL HERNIA [None]
  - INGUINAL HERNIA [None]
  - INTESTINAL PERFORATION [None]
  - RESPIRATORY FAILURE [None]
  - SMALL INTESTINAL OBSTRUCTION [None]
  - SMALL INTESTINE GANGRENE [None]
